FAERS Safety Report 18851425 (Version 1)
Quarter: 2021Q1

REPORT INFORMATION
  Report Type: Report from Study
  Country: AU (occurrence: AU)
  Receive Date: 20210205
  Receipt Date: 20210205
  Transmission Date: 20210420
  Serious: Yes (Hospitalization, Other)
  Sender: FDA-Public Use
  Company Number: NVSC2020AU322709

PATIENT
  Age: 74 Year
  Sex: Male
  Weight: 67.4 kg

DRUGS (43)
  1. NETUPITANT;PALONOSETRON [Concomitant]
     Active Substance: NETUPITANT\PALONOSETRON HYDROCHLORIDE
     Indication: PROPHYLAXIS
     Dosage: 300MG/500MCG STAT
     Route: 048
     Dates: start: 20201201, end: 20201201
  2. ONDASETRON [Concomitant]
     Active Substance: ONDANSETRON
     Indication: PROPHYLAXIS OF NAUSEA AND VOMITING
     Dosage: 8 MG, PRN
     Route: 042
     Dates: start: 20201125, end: 20201216
  3. PIPERACILLIN AND TAZOBACTAM [Concomitant]
     Active Substance: PIPERACILLIN SODIUM\TAZOBACTAM SODIUM
     Indication: URINARY TRACT INFECTION
     Dosage: 4G/0.5 G 8QH
     Route: 042
     Dates: start: 20201128, end: 20201201
  4. IBUPROFEN. [Concomitant]
     Active Substance: IBUPROFEN
     Indication: PAIN
     Dosage: 400 MG, PRN
     Route: 048
     Dates: start: 2019
  5. AUGMENTIN [Concomitant]
     Active Substance: AMOXICILLIN\CLAVULANATE POTASSIUM
     Indication: NEUTROPHIL COUNT DECREASED
     Dosage: 875/125 G, BD
     Route: 048
     Dates: start: 20210104, end: 20210114
  6. SODIUM BICARBONATE. [Concomitant]
     Active Substance: SODIUM BICARBONATE
     Indication: MUCOSAL INFLAMMATION
     Dosage: 15 G 4 TIMES/DAY
     Route: 048
     Dates: start: 20201210
  7. IBRUTINIB [Suspect]
     Active Substance: IBRUTINIB
     Indication: MANTLE CELL LYMPHOMA
     Dosage: 560 MG, OD
     Route: 048
     Dates: start: 20201119
  8. MAGNESIUM SULFATE. [Concomitant]
     Active Substance: MAGNESIUM SULFATE
     Dosage: 800 MG QD
     Route: 048
     Dates: start: 20201201
  9. FLUTICASONE. [Concomitant]
     Active Substance: FLUTICASONE
     Indication: ASTHMA
     Dosage: 250MCG/25MCG PRN
     Route: 055
  10. MAGNESIUM SULFATE. [Concomitant]
     Active Substance: MAGNESIUM SULFATE
     Dosage: 2 CAPSULES, QD
     Route: 048
     Dates: start: 20201210
  11. TRIMETHOPRIM SULFAMETHOXAZOLE [Concomitant]
     Active Substance: SULFAMETHOXAZOLE\TRIMETHOPRIM
     Indication: PROPHYLAXIS
     Dosage: 80/400MG, OD
     Route: 048
     Dates: start: 2018, end: 20201123
  12. SALBUTAMOL [Concomitant]
     Active Substance: ALBUTEROL
     Indication: ASTHMA
     Dosage: 100 UG, PRN
     Route: 055
  13. TEMAZEPAM. [Concomitant]
     Active Substance: TEMAZEPAM
     Indication: INSOMNIA
     Dosage: 10 MG, PRN
     Route: 048
     Dates: start: 2019
  14. METOCLOPRAMIDE. [Concomitant]
     Active Substance: METOCLOPRAMIDE
     Dosage: 10 MG, PRN
     Route: 048
     Dates: start: 20210121
  15. AMOXICILLIN CLAVULANIC ACID [Concomitant]
     Active Substance: AMOXICILLIN\CLAVULANIC ACID
     Indication: URINARY TRACT INFECTION
     Dosage: 875/125MG, BD
     Route: 048
     Dates: start: 20201201, end: 20201207
  16. BACTRIM [Concomitant]
     Active Substance: SULFAMETHOXAZOLE\TRIMETHOPRIM
     Indication: PROPHYLAXIS
     Dosage: 40/200MG OD
     Route: 048
     Dates: start: 20201124
  17. TISAGENLECLEUCEL. [Suspect]
     Active Substance: TISAGENLECLEUCEL
     Indication: MANTLE CELL LYMPHOMA
     Dosage: 1.57 10E6/KG
     Route: 048
     Dates: start: 20210127
  18. ALLOPURINOL. [Concomitant]
     Active Substance: ALLOPURINOL
     Indication: PROPHYLAXIS
     Dosage: 300 MG, OD
     Route: 048
     Dates: start: 20201121
  19. VALACICLOVIR [Concomitant]
     Active Substance: VALACYCLOVIR HYDROCHLORIDE
     Indication: PROPHYLAXIS
     Dosage: 500 MG, OD
     Route: 048
     Dates: start: 2018, end: 20201118
  20. MAGNESIUM SULFATE. [Concomitant]
     Active Substance: MAGNESIUM SULFATE
     Indication: ELECTROLYTE SUBSTITUTION THERAPY
     Dosage: 20 MMOL, STAT
     Route: 042
     Dates: start: 20201128, end: 20201129
  21. GENTAMICIN. [Concomitant]
     Active Substance: GENTAMICIN
     Indication: URINARY TRACT INFECTION
     Dosage: 320 MG, STAT
     Route: 042
     Dates: start: 20201128, end: 20201128
  22. PARACETAMOL [Concomitant]
     Active Substance: ACETAMINOPHEN
     Indication: PAIN
     Dosage: 1000 MG, PRN
     Route: 048
     Dates: start: 2019
  23. PARACETAMOL [Concomitant]
     Active Substance: ACETAMINOPHEN
     Indication: PYREXIA
     Dosage: 1 G, PRN
     Route: 048
     Dates: start: 20210129
  24. TAMSULOSIN [Concomitant]
     Active Substance: TAMSULOSIN
     Indication: PROSTATOMEGALY
     Dosage: 400MCG, OD
     Route: 048
     Dates: start: 20201203
  25. FLUDARABINE [Suspect]
     Active Substance: FLUDARABINE PHOSPHATE
     Indication: PRODUCT USED FOR UNKNOWN INDICATION
     Dosage: 43 MG
     Route: 065
     Dates: start: 20210122
  26. DOCUSATE SODIUM + SENNA [Concomitant]
     Active Substance: DOCUSATE SODIUM\SENNOSIDE A\SENNOSIDE B
     Indication: CONSTIPATION
     Dosage: 8MG+50MG BD
     Route: 048
     Dates: start: 20201112, end: 20201119
  27. TARGIN [Concomitant]
     Active Substance: NALOXONE HYDROCHLORIDE\OXYCODONE HYDROCHLORIDE
     Indication: PROCEDURAL PAIN
     Dosage: 10/5 MG BD
     Route: 048
     Dates: start: 20201112, end: 20201216
  28. VALACICLOVIR [Concomitant]
     Active Substance: VALACYCLOVIR HYDROCHLORIDE
     Dosage: 500 MG BD
     Route: 048
     Dates: start: 20201119
  29. POTASSIUM CHLORIDE. [Concomitant]
     Active Substance: POTASSIUM CHLORIDE
     Indication: HYPOKALAEMIA
     Dosage: 600 MG, BID
     Route: 048
     Dates: start: 20201119, end: 20201203
  30. METOCLOPRAMIDE. [Concomitant]
     Active Substance: METOCLOPRAMIDE
     Indication: PROPHYLAXIS
     Dosage: 10 MG, TDS
     Route: 048
     Dates: start: 20201129, end: 20201216
  31. AUGMENTIN [Concomitant]
     Active Substance: AMOXICILLIN\CLAVULANATE POTASSIUM
     Indication: LOWER RESPIRATORY TRACT INFECTION
  32. DOCUSATE SODIUM + SENNA [Concomitant]
     Active Substance: DOCUSATE SODIUM\SENNOSIDE A\SENNOSIDE B
     Dosage: 50/8 MG OD
     Route: 048
     Dates: start: 20201119
  33. THIAMIN [Concomitant]
     Active Substance: THIAMINE
     Indication: VITAMIN B1
     Dosage: 100 MG, TDS
     Route: 048
     Dates: start: 20201120
  34. RASBURICASE [Concomitant]
     Active Substance: RASBURICASE
     Indication: PROPHYLAXIS
     Dosage: 6 MG, STAT
     Route: 042
     Dates: start: 20201201, end: 20201201
  35. FILGRASTIM [Concomitant]
     Active Substance: FILGRASTIM
     Indication: NEUTROPENIA
     Dosage: 300MCG, DAILY
     Route: 058
     Dates: start: 20201112, end: 20201116
  36. AUGMENTIN [Concomitant]
     Active Substance: AMOXICILLIN\CLAVULANATE POTASSIUM
     Indication: INFECTION
     Dosage: 1 G, BD
     Route: 048
     Dates: start: 20201213
  37. MIRTAZAPINE. [Concomitant]
     Active Substance: MIRTAZAPINE
     Indication: DEPRESSED MOOD
     Dosage: 15 MG, OD
     Route: 048
     Dates: start: 20201211
  38. MIRTAZAPINE. [Concomitant]
     Active Substance: MIRTAZAPINE
     Indication: DEPRESSION
  39. CYCLOPHOSPHAMIDE. [Suspect]
     Active Substance: CYCLOPHOSPHAMIDE
     Indication: PRODUCT USED FOR UNKNOWN INDICATION
     Dosage: 430 MG
     Route: 065
     Dates: start: 20210122
  40. SULFAMETHOXAZOLE AND TRIMETHOPRIM [Concomitant]
     Active Substance: SULFAMETHOXAZOLE\TRIMETHOPRIM
     Indication: ANTIBIOTIC PROPHYLAXIS
     Dosage: 40/200 MG OD
     Route: 048
     Dates: start: 20201124
  41. ENDONE [Concomitant]
     Active Substance: OXYCODONE HYDROCHLORIDE
     Indication: PAIN
     Dosage: 5 MG, PRN
     Route: 048
     Dates: start: 2019
  42. MULTIVITAMINS [Concomitant]
     Active Substance: VITAMINS
     Indication: NUTRITIONAL SUPPLEMENTATION
     Dosage: 1 TABLET, OD
     Route: 048
     Dates: start: 20201120
  43. MACROGOL [Concomitant]
     Active Substance: POLYETHYLENE GLYCOLS
     Indication: CONSTIPATION
     Dosage: 17 G, BD
     Route: 048
     Dates: start: 20201210

REACTIONS (4)
  - Neutrophil count decreased [Recovered/Resolved]
  - Cytokine release syndrome [Not Recovered/Not Resolved]
  - Atrial fibrillation [Recovering/Resolving]
  - Neurotoxicity [Not Recovered/Not Resolved]

NARRATIVE: CASE EVENT DATE: 20201128
